FAERS Safety Report 7798007-X (Version None)
Quarter: 2011Q4

REPORT INFORMATION
  Report Type: 
  Country: None (occurrence: None)
  Receive Date: 20111005
  Receipt Date: 20110920
  Transmission Date: 20120403
  Serious: Yes (Other)
  Sender: FDA-Public Use
  Company Number: GB-WATSON-2011-15097

PATIENT
  Age: 34 Year
  Sex: Female

DRUGS (1)
  1. CITALOPRAM HYDROBROMIDE [Suspect]
     Indication: PRODUCT USED FOR UNKNOWN INDICATION
     Dosage: UNK

REACTIONS (12)
  - JOINT STIFFNESS [None]
  - HEART RATE INCREASED [None]
  - HEADACHE [None]
  - SENSATION OF PRESSURE [None]
  - CHEST DISCOMFORT [None]
  - PARAESTHESIA [None]
  - AGITATION [None]
  - NUCHAL RIGIDITY [None]
  - CHILLS [None]
  - FEELING COLD [None]
  - PYREXIA [None]
  - SEIZURE LIKE PHENOMENA [None]
